FAERS Safety Report 5304556-6 (Version None)
Quarter: 2007Q2

REPORT INFORMATION
  Report Type: 
  Country: None (occurrence: None)
  Receive Date: 20070419
  Receipt Date: 20070419
  Transmission Date: 20071010
  Serious: No
  Sender: FDA-Public Use
  Company Number: None

PATIENT
  Age: 27 Year
  Sex: Female
  Weight: 61.2356 kg

DRUGS (1)
  1. MONISTAT 1 COMBINATION PACK [Suspect]
     Indication: FUNGAL INFECTION
     Dosage: ONE OVULE ONCE VAG
     Route: 067
     Dates: start: 20070401, end: 20070401

REACTIONS (5)
  - ADVERSE DRUG REACTION [None]
  - DISCOMFORT [None]
  - PAIN [None]
  - TREMOR [None]
  - VAGINAL BURNING SENSATION [None]
